FAERS Safety Report 13845319 (Version 1)
Quarter: 2017Q3

REPORT INFORMATION
  Report Type: Spontaneous
  Country: NL (occurrence: NL)
  Receive Date: 20170808
  Receipt Date: 20170808
  Transmission Date: 20171127
  Serious: Yes (Death, Other)
  Sender: FDA-Public Use
  Company Number: NL-TEVA-794287ROM

PATIENT
  Age: 75 Year
  Sex: Female

DRUGS (1)
  1. PREDNISOLON [Suspect]
     Active Substance: PREDNISOLONE
     Indication: MUSCLE DISORDER
     Dosage: HIGH-DOSE TREATMENT (UNKNOWN IF IT WAS ONE TIME)
     Dates: start: 2017

REACTIONS (3)
  - Gastric haemorrhage [Fatal]
  - Gastric ulcer [Fatal]
  - Pyelonephritis [Fatal]

NARRATIVE: CASE EVENT DATE: 2017
